FAERS Safety Report 10615457 (Version 2)
Quarter: 2015Q1

REPORT INFORMATION
  Report Type: Spontaneous
  Country: US (occurrence: US)
  Receive Date: 20141201
  Receipt Date: 20150218
  Transmission Date: 20150720
  Serious: No
  Sender: FDA-Public Use
  Company Number: US-PFIZER INC-2014325255

PATIENT
  Age: 75 Year
  Sex: Male
  Weight: 95 kg

DRUGS (3)
  1. CIPROFLOXACIN. [Interacting]
     Active Substance: CIPROFLOXACIN
     Indication: CONJUNCTIVITIS
  2. DOXYCYCLINE HYCLATE. [Suspect]
     Active Substance: DOXYCYCLINE HYCLATE
     Indication: LYME DISEASE
     Dosage: UNK, 1X/DAY
     Dates: start: 201410
  3. CIPROFLOXACIN. [Interacting]
     Active Substance: CIPROFLOXACIN
     Indication: EYE INFECTION
     Dosage: 1 GTT, 1X/DAY (0.3 % 5 ML)
     Route: 031
     Dates: start: 20141103

REACTIONS (3)
  - Feeling abnormal [Recovered/Resolved]
  - Drug interaction [Recovered/Resolved]
  - Dizziness [Recovered/Resolved]

NARRATIVE: CASE EVENT DATE: 20141103
